FAERS Safety Report 6169491-2 (Version None)
Quarter: 2009Q2

REPORT INFORMATION
  Report Type: 
  Country: None (occurrence: None)
  Receive Date: 20090428
  Receipt Date: 20090423
  Transmission Date: 20091009
  Serious: Yes (Death, Other)
  Sender: FDA-Public Use
  Company Number: DE-WYE-H03794008

PATIENT
  Sex: Male

DRUGS (8)
  1. TACROLIMUS [Suspect]
     Indication: PROPHYLAXIS AGAINST TRANSPLANT REJECTION
     Dosage: ^1^ BID
     Route: 048
     Dates: start: 20070301
  2. COTRIM FORTE L.U.T. [Concomitant]
     Indication: ANTIFUNGAL PROPHYLAXIS
  3. MORPHALGIN [Concomitant]
     Indication: PAIN
  4. DEXAMETHASONE [Concomitant]
     Indication: PAIN
  5. PANTOZOL [Concomitant]
     Indication: PROPHYLAXIS AGAINST GASTROINTESTINAL ULCER
  6. NOVALGIN [Concomitant]
     Indication: PAIN
  7. DICLOFENAC [Concomitant]
     Indication: PAIN
  8. AMPICILLIN AND SULBACTAM [Concomitant]

REACTIONS (4)
  - HEPATIC NEOPLASM MALIGNANT RECURRENT [None]
  - METASTASES TO ABDOMINAL WALL [None]
  - METASTASES TO BONE [None]
  - METASTASES TO LUNG [None]
